FAERS Safety Report 4271609-3 (Version None)
Quarter: 2004Q1

REPORT INFORMATION
  Report Type: 
  Country: None (occurrence: None)
  Receive Date: 20040113
  Receipt Date: 20031230
  Transmission Date: 20041129
  Serious: Yes (Hospitalization)
  Sender: FDA-Public Use
  Company Number: CERZ-10481

PATIENT
  Age: 49 Year
  Sex: Male
  Weight: 81.8 kg

DRUGS (7)
  1. CEREZYME [Suspect]
     Indication: GAUCHER'S DISEASE
     Dosage: 3200 UNITS Q2WKS IV
     Route: 042
     Dates: start: 20020601
  2. OXYCONTIN [Concomitant]
  3. NITROFURANTOIN [Concomitant]
  4. VITAMIN C [Concomitant]
  5. VITAMIN B6 [Concomitant]
  6. FOLIC ACID [Concomitant]
  7. CRAN-MAX [Concomitant]

REACTIONS (5)
  - CHEST DISCOMFORT [None]
  - MEDICATION ERROR [None]
  - NIGHT SWEATS [None]
  - TACHYCARDIA [None]
  - URINARY TRACT INFECTION [None]
